FAERS Safety Report 4523605-6 (Version None)
Quarter: 2004Q4

REPORT INFORMATION
  Report Type: 
  Country: None (occurrence: None)
  Receive Date: 20041117
  Receipt Date: 20040802
  Transmission Date: 20050328
  Serious: Yes (Hospitalization)
  Sender: FDA-Public Use
  Company Number: DE-JNJFOC-20040800756

PATIENT
  Age: 77 Year
  Sex: Female

DRUGS (17)
  1. LEVOFLOXACIN [Suspect]
     Indication: PNEUMONIA
     Dosage: INTRAVENOUS
     Route: 042
     Dates: start: 20031013, end: 20031015
  2. LEVOFLOXACIN [Suspect]
     Indication: PNEUMONIA
     Dosage: ORAL
     Route: 048
     Dates: start: 20031016, end: 20031020
  3. LEVAQUIN [Suspect]
     Indication: CHRONIC OBSTRUCTIVE AIRWAYS DISEASE EXACERBATED
     Dosage: 500 MG, INTRAVENOUS
     Route: 042
     Dates: start: 20031112, end: 20031119
  4. LEVAQUIN [Suspect]
     Indication: CHRONIC OBSTRUCTIVE AIRWAYS DISEASE EXACERBATED
     Dosage: 500 MG, ORAL
     Route: 048
     Dates: start: 20031120, end: 20031127
  5. ALBUTEROL [Concomitant]
  6. CAPTOPRIL [Concomitant]
  7. LANOXIN [Concomitant]
  8. PREDNISONE [Concomitant]
  9. CARDIZEM [Concomitant]
  10. HUMIBID (GUAIFENESIN) [Concomitant]
  11. INSULIN SLIDING SCALE (INSULIN) [Concomitant]
  12. AMBIEN [Concomitant]
  13. ALLEGRA [Concomitant]
  14. COMBIVENT [Concomitant]
  15. CELEBREX [Concomitant]
  16. LASIX [Concomitant]
  17. PROTONIX [Concomitant]

REACTIONS (1)
  - CHRONIC OBSTRUCTIVE AIRWAYS DISEASE EXACERBATED [None]
